FAERS Safety Report 8757071 (Version 2)
Quarter: 2012Q4

REPORT INFORMATION
  Report Type: 
  Country: JP (occurrence: JP)
  Receive Date: 20120828
  Receipt Date: 20120920
  Transmission Date: 20130627
  Serious: Yes (Other)
  Sender: FDA-Public Use
  Company Number: JP-PFIZER INC-2012205445

PATIENT
  Age: 65 Year
  Sex: Male
  Weight: 80.5 kg

DRUGS (9)
  1. GENOTROPIN TC [Suspect]
     Indication: GROWTH HORMONE DEFICIENCY
     Dosage: 0.1 mg, 1x/day
     Route: 058
     Dates: start: 20090105, end: 20120713
  2. FERROMIA [Concomitant]
     Indication: ANAEMIA
     Dosage: 50 mg, 1x/day
     Route: 048
  3. LUPRAC [Concomitant]
     Indication: OEDEMA
     Dosage: 2 mg, every other day
     Route: 048
  4. TAKEPRON [Concomitant]
     Indication: GASTRIC ULCER
     Dosage: 15 mg, 1x/day
     Route: 048
  5. OLMETEC [Concomitant]
     Indication: GASTRIC ULCER
     Dosage: 20 mg, 1x/day
     Route: 048
  6. BEZATOL [Concomitant]
     Indication: HYPERLIPIDAEMIA
     Dosage: 100 mg, 2x/day
     Route: 048
  7. EXCEGRAN [Concomitant]
     Indication: EPILEPSY
     Dosage: 100 mg, 2x/day
     Route: 048
  8. URSO [Concomitant]
     Indication: LIVER DISORDER
     Dosage: 200 mg, 3x/day
     Route: 048
  9. GABALON [Concomitant]
     Indication: SPASTIC PARALYSIS
     Dosage: 5 mg, 3x/day
     Route: 048

REACTIONS (2)
  - Prostate cancer [Not Recovered/Not Resolved]
  - Cerebral haemorrhage [Recovered/Resolved]
